FAERS Safety Report 7094056-8 (Version None)
Quarter: 2010Q4

REPORT INFORMATION
  Report Type: 
  Country: None (occurrence: None)
  Receive Date: 20101110
  Receipt Date: 20101028
  Transmission Date: 20110411
  Serious: Yes (Other)
  Sender: FDA-Public Use
  Company Number: US-ELI_LILLY_AND_COMPANY-US201011000434

PATIENT
  Age: 30 Year
  Sex: Female

DRUGS (1)
  1. STRATTERA [Suspect]
     Dosage: 1 D/F, UNK

REACTIONS (5)
  - CONSCIOUSNESS FLUCTUATING [None]
  - CONVULSION [None]
  - CRYING [None]
  - CYSTITIS INTERSTITIAL [None]
  - EMOTIONAL DISORDER [None]
